FAERS Safety Report 7033069-9 (Version None)
Quarter: 2010Q4

REPORT INFORMATION
  Report Type: 
  Country: None (occurrence: None)
  Receive Date: 20101007
  Receipt Date: 20101001
  Transmission Date: 20110411
  Serious: Yes (Hospitalization)
  Sender: FDA-Public Use
  Company Number: FR-PFIZER INC-2010124655

PATIENT
  Age: 78 Year
  Sex: Male

DRUGS (3)
  1. TAHOR [Suspect]
     Dosage: 10 MG
     Dates: start: 20100801
  2. TAHOR [Suspect]
     Dosage: 40 MG
  3. SOTALEX [Concomitant]
     Dosage: UNK

REACTIONS (2)
  - HEPATIC FAILURE [None]
  - RENAL FAILURE ACUTE [None]
